FAERS Safety Report 8050009-4 (Version None)
Quarter: 2012Q1

REPORT INFORMATION
  Report Type: 
  Country: None (occurrence: None)
  Receive Date: 20120117
  Receipt Date: 20120112
  Transmission Date: 20120608
  Serious: Yes (Other)
  Sender: FDA-Public Use
  Company Number: US-TEVA-317759USA

PATIENT
  Sex: Female

DRUGS (2)
  1. PROPOXYPHENE NAPSYLATE W/ ACETAMINOPHEN [Suspect]
     Indication: PAIN MANAGEMENT
     Dates: start: 20050118, end: 20101101
  2. PROPACET 100 [Suspect]
     Indication: PAIN MANAGEMENT

REACTIONS (2)
  - CARDIOMYOPATHY [None]
  - MYOCARDIAL INFARCTION [None]
